FAERS Safety Report 18260878 (Version 2)
Quarter: 2020Q3

REPORT INFORMATION
  Report Type: Spontaneous
  Country: US (occurrence: US)
  Receive Date: 20200914
  Receipt Date: 20200923
  Transmission Date: 20201103
  Serious: Yes (Other)
  Sender: FDA-Public Use
  Company Number: US-009507513-2009USA003869

PATIENT
  Age: 86 Year
  Sex: Male

DRUGS (1)
  1. KEYTRUDA [Suspect]
     Active Substance: PEMBROLIZUMAB
     Indication: UVEAL MELANOMA
     Dosage: 207.6 MG IN 50 ML OF 0.9% NORMAL SALINE (6 CYCLES)
     Route: 042

REACTIONS (2)
  - Retinal artery occlusion [Unknown]
  - Off label use [Unknown]
